FAERS Safety Report 5574080-4 (Version None)
Quarter: 2007Q4

REPORT INFORMATION
  Report Type: 
  Country: None (occurrence: None)
  Receive Date: 20071221
  Receipt Date: 20071207
  Transmission Date: 20080405
  Serious: Yes (Hospitalization)
  Sender: FDA-Public Use
  Company Number: 2007002473

PATIENT
  Age: 78 Year

DRUGS (1)
  1. MACUGEN [Suspect]
     Indication: MACULAR DEGENERATION
     Dosage: (0.3 MG)
     Dates: start: 20071123

REACTIONS (2)
  - CHEST PAIN [None]
  - TACHYCARDIA [None]
